FAERS Safety Report 21136555 (Version 1)
Quarter: 2022Q3

REPORT INFORMATION
  Report Type: Spontaneous
  Country: US (occurrence: None)
  Receive Date: 20220726
  Receipt Date: 20220726
  Transmission Date: 20221026
  Serious: No
  Sender: FDA-Public Use
  Company Number: None

PATIENT
  Sex: Male

DRUGS (1)
  1. HUMIRA [Suspect]
     Active Substance: ADALIMUMAB
     Indication: Hepatitis C
     Dosage: 40 MG EVERY 2 WEEKS SQ?
     Route: 058
     Dates: start: 20211101

REACTIONS (1)
  - Drug ineffective [None]
